FAERS Safety Report 12426013 (Version 3)
Quarter: 2016Q3

REPORT INFORMATION
  Report Type: Spontaneous
  Country: GB (occurrence: GB)
  Receive Date: 20160601
  Receipt Date: 20160722
  Transmission Date: 20161109
  Serious: Yes (Other)
  Sender: FDA-Public Use
  Company Number: GB-AMGEN-GBRSP2016067120

PATIENT
  Age: 62 Year
  Sex: Female

DRUGS (4)
  1. VINFLUNINE [Concomitant]
     Active Substance: VINFLUNINE
     Dosage: 500 MG, THREE WEEKLY
     Route: 065
  2. DEXAMETHASON [Concomitant]
     Active Substance: DEXAMETHASONE
     Dosage: 8 MG, UNK
     Route: 042
  3. NEULASTA [Suspect]
     Active Substance: PEGFILGRASTIM
     Indication: PRODUCT USED FOR UNKNOWN INDICATION
     Dosage: UNK
     Route: 065
  4. METOCLOPRAMIDE. [Concomitant]
     Active Substance: METOCLOPRAMIDE
     Dosage: UNK

REACTIONS (8)
  - Lower respiratory tract infection [Unknown]
  - Jaundice [Unknown]
  - Pain [Unknown]
  - Limb discomfort [Not Recovered/Not Resolved]
  - Extravasation [Unknown]
  - Vein discolouration [Unknown]
  - Tenderness [Unknown]
  - Disease progression [Unknown]

NARRATIVE: CASE EVENT DATE: 201605
